FAERS Safety Report 9017090 (Version 1)
Quarter: 2013Q1

REPORT INFORMATION
  Report Type: Spontaneous
  Country: EC (occurrence: EC)
  Receive Date: 20130117
  Receipt Date: 20130117
  Transmission Date: 20140127
  Serious: Yes (Death)
  Sender: FDA-Public Use
  Company Number: PHHY2013EC004235

PATIENT
  Age: 51 Year
  Sex: Female

DRUGS (3)
  1. TEGRETOL [Suspect]
     Dosage: UNK UKN, QD
     Route: 048
  2. EPAMIN [Concomitant]
  3. VITAMAN [Concomitant]

REACTIONS (1)
  - Death [Fatal]
